FAERS Safety Report 9371810 (Version 2)
Quarter: 2013Q3

REPORT INFORMATION
  Report Type: Spontaneous
  Country: US (occurrence: None)
  Receive Date: 20130625
  Receipt Date: 20130912
  Transmission Date: 20140515
  Serious: Yes (Life-Threatening, Hospitalization)
  Sender: FDA-Public Use
  Company Number: SP06765

PATIENT
  Age: 62 Year
  Sex: Male

DRUGS (6)
  1. XIFAXAN [Suspect]
     Indication: HEPATIC ENCEPHALOPATHY
     Dates: start: 2012
  2. INSULIN [Concomitant]
  3. LACTULOSE [Concomitant]
  4. MIRALAX [Concomitant]
  5. FUROSEMIDE [Concomitant]
  6. SPIRONOLACTONE [Concomitant]
     Route: 048
     Dates: start: 2012

REACTIONS (3)
  - Gastrointestinal haemorrhage [None]
  - Joint dislocation [None]
  - Syncope [None]
